FAERS Safety Report 17924631 (Version 1)
Quarter: 2020Q2

REPORT INFORMATION
  Report Type: Other
  Country: US (occurrence: US)
  Receive Date: 20200622
  Receipt Date: 20200622
  Transmission Date: 20200714
  Serious: No
  Sender: FDA-Public Use
  Company Number: US-ACORDA-ACO_164482_2020

PATIENT
  Sex: Female

DRUGS (4)
  1. DUOPA [Concomitant]
     Active Substance: CARBIDOPA\LEVODOPA
     Indication: PRODUCT USED FOR UNKNOWN INDICATION
     Dosage: 4.63MG/20MG PER ML, PUMP HOOKED ON THE PATIENT RUNNING FOR 24HRS
     Route: 065
  2. INBRIJA [Suspect]
     Active Substance: LEVODOPA
     Indication: PARKINSON^S DISEASE
     Dosage: 84 MILLIGRAM, 1 DOSE A DAY
     Dates: start: 20200323
  3. UDOPA [Concomitant]
     Indication: PRODUCT USED FOR UNKNOWN INDICATION
     Dosage: 24 HR CONSTANT DOSE
     Route: 065
  4. INBRIJA [Suspect]
     Active Substance: LEVODOPA
     Indication: ON AND OFF PHENOMENON

REACTIONS (6)
  - Device occlusion [Unknown]
  - Device issue [Unknown]
  - Incorrect dose administered by device [Unknown]
  - Cough [Recovering/Resolving]
  - Therapeutic product effect decreased [Unknown]
  - Drug ineffective [Unknown]
